FAERS Safety Report 8362875-3 (Version None)
Quarter: 2012Q2

REPORT INFORMATION
  Report Type: 
  Country: None (occurrence: None)
  Receive Date: 20120516
  Receipt Date: 20120507
  Transmission Date: 20120825
  Serious: Yes (Other)
  Sender: FDA-Public Use
  Company Number: JP-VERTEX PHARMACEUTICALS INC.-AE-2012-006754

PATIENT
  Age: 64 Year
  Sex: Male

DRUGS (28)
  1. ACTOS [Concomitant]
     Route: 048
     Dates: end: 20120206
  2. EVAMYL [Concomitant]
     Route: 048
  3. MUCOSTA [Concomitant]
     Route: 048
  4. VOGLIBOSE [Concomitant]
     Route: 048
     Dates: start: 20120206
  5. ADALAT CC [Concomitant]
     Route: 048
     Dates: start: 20120207, end: 20120220
  6. TELAVIC (TELAPREVIR) [Suspect]
     Indication: HEPATITIS C
     Route: 048
     Dates: start: 20120131, end: 20120227
  7. GLYCYRON [Concomitant]
     Route: 048
     Dates: end: 20120206
  8. ALDACTONE [Concomitant]
     Route: 048
     Dates: start: 20120207, end: 20120220
  9. TELAVIC (TELAPREVIR) [Suspect]
     Route: 048
     Dates: start: 20120228, end: 20120319
  10. AMARYL [Concomitant]
     Route: 048
     Dates: start: 20120306, end: 20120402
  11. VITANEURIN [Concomitant]
     Route: 048
     Dates: start: 20120306, end: 20120402
  12. BASEN OD [Concomitant]
     Route: 048
     Dates: start: 20120327
  13. ADALAT CC [Concomitant]
     Route: 048
     Dates: start: 20120306, end: 20120402
  14. PEGINTERFERON ALFA-2B [Concomitant]
     Indication: HEPATITIS C
     Route: 051
     Dates: start: 20120131
  15. ACTOS [Concomitant]
     Route: 048
     Dates: start: 20120207, end: 20120220
  16. ACTOS [Concomitant]
     Route: 048
     Dates: start: 20120306, end: 20120402
  17. ADALAT CC [Concomitant]
     Route: 048
     Dates: start: 20120410
  18. ACTOS [Concomitant]
     Route: 048
     Dates: start: 20120410
  19. NIFEDIPINE [Concomitant]
     Route: 048
     Dates: end: 20120206
  20. AMARYL [Concomitant]
     Route: 048
     Dates: start: 20120410
  21. VITANEURIN [Concomitant]
     Route: 048
     Dates: end: 20120220
  22. ALLOPURINOL [Concomitant]
     Route: 048
     Dates: start: 20120228
  23. SPIRONOLACTONE [Concomitant]
     Route: 048
     Dates: end: 20120206
  24. AMARYL [Concomitant]
     Route: 048
     Dates: end: 20120220
  25. BASEN OD [Concomitant]
     Route: 048
     Dates: start: 20120207, end: 20120220
  26. FAMOTIDINE [Concomitant]
     Route: 048
     Dates: start: 20120321, end: 20120403
  27. RIBAVIRIN [Concomitant]
     Indication: HEPATITIS C
     Route: 048
     Dates: start: 20120131
  28. VITANEURIN [Concomitant]
     Route: 048
     Dates: start: 20120410

REACTIONS (1)
  - RASH [None]
